FAERS Safety Report 6259008-6 (Version None)
Quarter: 2009Q3

REPORT INFORMATION
  Report Type: 
  Country: None (occurrence: None)
  Receive Date: 20090707
  Receipt Date: 20090629
  Transmission Date: 20100115
  Serious: Yes (Hospitalization, Other)
  Sender: FDA-Public Use
  Company Number: PHHY2009GB11200

PATIENT
  Sex: Male
  Weight: 78 kg

DRUGS (3)
  1. CLOZARIL [Suspect]
     Indication: SCHIZOPHRENIA
     Dosage: 100 MG MANE, 225 MG NOCTE
     Dates: start: 20090227
  2. CLOZARIL [Suspect]
     Dosage: 300 MG DAILY
     Route: 048
     Dates: end: 20090320
  3. ZOPICLONE [Concomitant]
     Indication: INSOMNIA
     Dosage: 7.5 MG DAILY
     Route: 048
     Dates: start: 20090225, end: 20090427

REACTIONS (12)
  - ABASIA [None]
  - ABDOMINAL DISCOMFORT [None]
  - ASTHENIA [None]
  - CONVULSION [None]
  - DEPRESSED LEVEL OF CONSCIOUSNESS [None]
  - DIVERTICULUM [None]
  - HEADACHE [None]
  - HYPOTONIA [None]
  - PYREXIA [None]
  - SEDATION [None]
  - TREATMENT NONCOMPLIANCE [None]
  - UNRESPONSIVE TO STIMULI [None]
